FAERS Safety Report 23910926 (Version 1)
Quarter: 2024Q2

REPORT INFORMATION
  Report Type: Spontaneous
  Country: US (occurrence: None)
  Receive Date: 20240526
  Receipt Date: 20240526
  Transmission Date: 20240715
  Serious: No
  Sender: FDA-Public Use
  Company Number: None

PATIENT
  Age: 62 Year
  Sex: Female
  Weight: 81.9 kg

DRUGS (4)
  1. DULOXETINE HYDROCHLORIDE [Suspect]
     Active Substance: DULOXETINE HYDROCHLORIDE
     Indication: Sciatica
     Dosage: 1 TABLET AT BEDTIME ORAL
     Route: 048
     Dates: start: 20231128, end: 20240524
  2. DULOXETINE [Concomitant]
     Active Substance: DULOXETINE
  3. PERCOCET [Suspect]
     Active Substance: ACETAMINOPHEN\OXYCODONE HYDROCHLORIDE
  4. HALCION [Concomitant]
     Active Substance: TRIAZOLAM

REACTIONS (6)
  - Nausea [None]
  - Gait disturbance [None]
  - Dysstasia [None]
  - Crying [None]
  - Vomiting [None]
  - Hypophagia [None]

NARRATIVE: CASE EVENT DATE: 20240524
